FAERS Safety Report 17396005 (Version 1)
Quarter: 2020Q1

REPORT INFORMATION
  Report Type: Spontaneous
  Country: US (occurrence: US)
  Receive Date: 20200207
  Receipt Date: 20200207
  Transmission Date: 20200409
  Serious: Yes (Hospitalization)
  Sender: FDA-Public Use
  Company Number: None

PATIENT
  Age: 63 Year
  Sex: Male

DRUGS (13)
  1. RAMIPRIL. [Concomitant]
     Active Substance: RAMIPRIL
  2. COLCHICINE. [Concomitant]
     Active Substance: COLCHICINE
  3. SILDENAFIL. [Suspect]
     Active Substance: SILDENAFIL
     Indication: PULMONARY HYPERTENSION
     Route: 048
     Dates: start: 20160408
  4. METOLAZONE. [Concomitant]
     Active Substance: METOLAZONE
  5. ELIQUIS [Concomitant]
     Active Substance: APIXABAN
  6. BUMETANIDE. [Concomitant]
     Active Substance: BUMETANIDE
  7. TEMAZEPAM. [Concomitant]
     Active Substance: TEMAZEPAM
  8. SIPRONOLACTONE [Concomitant]
  9. POT CL MICRO TAB [Concomitant]
  10. MYCOPHENOLIC TAB [Concomitant]
     Active Substance: MYCOPHENOLIC ACID
  11. LATANOPROST SOL [Concomitant]
  12. OXYCODONE [Concomitant]
     Active Substance: OXYCODONE
  13. ASPIRIN. [Concomitant]
     Active Substance: ASPIRIN

REACTIONS (2)
  - Blood pressure decreased [None]
  - Dehydration [None]

NARRATIVE: CASE EVENT DATE: 20200130
